FAERS Safety Report 8021048-4 (Version None)
Quarter: 2011Q4

REPORT INFORMATION
  Report Type: 
  Country: None (occurrence: None)
  Receive Date: 20111229
  Receipt Date: 20111229
  Transmission Date: 20120403
  Serious: Yes (Other)
  Sender: FDA-Public Use
  Company Number: None

PATIENT
  Sex: Female
  Weight: 61.2356 kg

DRUGS (1)
  1. MIRALAX [Suspect]
     Indication: COLONOSCOPY
     Dosage: .238 GRAM - 1/2 BOTTLE TWICE - 6+9 PM
     Dates: start: 20111206

REACTIONS (3)
  - BRONCHIAL SECRETION RETENTION [None]
  - LARYNGITIS [None]
  - WHEEZING [None]
